FAERS Safety Report 12060710 (Version 1)
Quarter: 2016Q1

REPORT INFORMATION
  Report Type: Report from Study
  Country: FR (occurrence: FR)
  Receive Date: 20160210
  Receipt Date: 20160210
  Transmission Date: 20160526
  Serious: Yes (Death)
  Sender: FDA-Public Use
  Company Number: FR-PFIZER INC-2016055363

PATIENT

DRUGS (7)
  1. CISPLATIN. [Suspect]
     Active Substance: CISPLATIN
     Indication: NEOPLASM MALIGNANT
     Dosage: 75 MG/M2, EVERY 3 WEEKS (OVER 1 H ON DAY 1)
     Route: 042
  2. PEGFILGRASTIM [Concomitant]
     Active Substance: PEGFILGRASTIM
     Indication: PROPHYLAXIS
     Dosage: 6 MG, EVERY 3 WEEKS ON DAY 6
  3. AFLIBERCEPT [Suspect]
     Active Substance: AFLIBERCEPT
     Indication: NEOPLASM MALIGNANT
     Dosage: 6 MG/KG,EVERY 3 WEEKS
     Route: 042
  4. DEXAMETHASONE. [Concomitant]
     Active Substance: DEXAMETHASONE
     Dosage: 8 MG, CYCLIC (BEFORE AND AFTER CHEMOTHERAPY ADMINISTRATION)
  5. DOCETAXEL. [Suspect]
     Active Substance: DOCETAXEL
     Indication: NEOPLASM MALIGNANT
     Dosage: 75 MG/M2, EVERY 3 WEEKS (OVER 1 H ON DAY 1 IMMEDIATELY AFTER THE AFLIBERCEPT I.V. INFUSION)
     Route: 042
  6. FLUOROURACIL. [Suspect]
     Active Substance: FLUOROURACIL
     Indication: NEOPLASM MALIGNANT
     Dosage: 750 MG/M2, EVERY 3 WEEKS (OVER 24 H ON DAYS 1-5)
     Route: 042
  7. CIPROFLOXACIN. [Concomitant]
     Active Substance: CIPROFLOXACIN
     Indication: ANTIBIOTIC PROPHYLAXIS
     Dosage: 500 MG, CYCLIC (EVERY 12 H FROM DAY 5 TO DAY 10)

REACTIONS (1)
  - Pulmonary embolism [Fatal]
